FAERS Safety Report 20075807 (Version 1)
Quarter: 2021Q4

REPORT INFORMATION
  Report Type: Spontaneous
  Country: US (occurrence: US)
  Receive Date: 20211116
  Receipt Date: 20211116
  Transmission Date: 20220303
  Serious: No
  Sender: FDA-Public Use
  Company Number: US-NOVARTISTESTPH-NVSC2021US255186

PATIENT
  Age: 53 Year
  Sex: Male

DRUGS (9)
  1. DOCETAXEL [Suspect]
     Active Substance: DOCETAXEL
     Indication: Product used for unknown indication
     Route: 065
  2. LUPRON [Concomitant]
     Active Substance: LEUPROLIDE ACETATE
     Indication: Prostate cancer
     Dosage: UNK, QMO
     Route: 065
  3. APALUTAMIDE [Concomitant]
     Active Substance: APALUTAMIDE
     Indication: Product used for unknown indication
     Dosage: 240 MG, QD, 4 TABLETS
     Route: 048
     Dates: start: 20210903
  4. APALUTAMIDE [Concomitant]
     Active Substance: APALUTAMIDE
     Dosage: 60 MG, QD
     Route: 048
  5. CANNABIS SATIVA SUBSP. INDICA TOP [Concomitant]
     Active Substance: CANNABIS SATIVA SUBSP. INDICA TOP
     Indication: Product used for unknown indication
     Route: 055
  6. MOTRIN [Concomitant]
     Active Substance: IBUPROFEN
     Indication: Product used for unknown indication
     Dosage: 600 MG, QD, DAILY AS NEEDED FOR MILD PAIN
     Route: 048
  7. POTASSIUM;SODIUM PHOSPHATE [Concomitant]
     Indication: Product used for unknown indication
     Dosage: 155-852-130 MG TABLET
     Route: 048
  8. POTASSIUM;SODIUM PHOSPHATE [Concomitant]
     Dosage: 155-852-130 MG TABLET,UNK, TID WITH MEALS
     Route: 065
  9. PREDNISONE [Concomitant]
     Active Substance: PREDNISONE
     Indication: Product used for unknown indication
     Dosage: 5 MG, ONCE/SINGLE
     Route: 048

REACTIONS (3)
  - Hypersensitivity [Unknown]
  - Back pain [Unknown]
  - Burning sensation [Unknown]

NARRATIVE: CASE EVENT DATE: 20161101
